FAERS Safety Report 13263855 (Version 1)
Quarter: 2017Q1

REPORT INFORMATION
  Report Type: Spontaneous
  Country: US (occurrence: US)
  Receive Date: 20170222
  Receipt Date: 20170222
  Transmission Date: 20170428
  Serious: No
  Sender: FDA-Public Use
  Company Number: None

PATIENT
  Age: 58 Year
  Sex: Female
  Weight: 68.4 kg

DRUGS (2)
  1. EXTRA STRENGTH ACETAMINOPHEN [Suspect]
     Active Substance: ACETAMINOPHEN
     Indication: SINUS HEADACHE
     Dosage: ?          QUANTITY:2 CAPSULE(S);?
     Route: 048
     Dates: start: 20170211, end: 20170222
  2. CARVEDILOL. [Concomitant]
     Active Substance: CARVEDILOL

REACTIONS (8)
  - Hypersensitivity [None]
  - No reaction on previous exposure to drug [None]
  - Feeling abnormal [None]
  - Headache [None]
  - Chest pain [None]
  - Muscular weakness [None]
  - Pain [None]
  - Product physical issue [None]

NARRATIVE: CASE EVENT DATE: 20170222
